FAERS Safety Report 6640288-X (Version None)
Quarter: 2010Q1

REPORT INFORMATION
  Report Type: 
  Country: None (occurrence: None)
  Receive Date: 20100318
  Receipt Date: 20100302
  Transmission Date: 20100710
  Serious: Yes (Death)
  Sender: FDA-Public Use
  Company Number: PL-MILLENNIUM PHARMACEUTICALS, INC.-2010-01496

PATIENT

DRUGS (3)
  1. VELCADE [Suspect]
     Indication: LEUKAEMIA PLASMACYTIC
     Dosage: 1.3 MG/M2, UNK
     Route: 042
  2. DOXORUBICIN [Suspect]
     Indication: LEUKAEMIA PLASMACYTIC
     Dosage: 9 MG/M2, UNK
     Route: 065
  3. DEXAMETHASONE [Suspect]
     Indication: LEUKAEMIA PLASMACYTIC
     Dosage: 40 UNK, UNK

REACTIONS (7)
  - BACTERIAL SEPSIS [None]
  - LEUKAEMIA PLASMACYTIC [None]
  - ORAL CANDIDIASIS [None]
  - ORAL HERPES [None]
  - PNEUMONIA [None]
  - RENAL FAILURE [None]
  - THROMBOCYTOPENIA [None]
